FAERS Safety Report 8200289 (Version 2)
Quarter: 2012Q4

REPORT INFORMATION
  Report Type: 
  Country: US (occurrence: US)
  Receive Date: 20111026
  Receipt Date: 20120914
  Transmission Date: 20130627
  Serious: Yes (Other)
  Sender: FDA-Public Use
  Company Number: US-US-EMD SERONO, INC.-7090314

PATIENT
  Age: 36 None
  Sex: Female

DRUGS (1)
  1. REBIF [Suspect]
     Indication: MULTIPLE SCLEROSIS
     Route: 058
     Dates: start: 20110804, end: 20111219

REACTIONS (5)
  - Pneumonia [Unknown]
  - Bronchitis [Unknown]
  - Urticaria [Recovered/Resolved]
  - Multiple allergies [Unknown]
  - Injection site pain [Not Recovered/Not Resolved]
